FAERS Safety Report 5999738-4 (Version None)
Quarter: 2008Q4

REPORT INFORMATION
  Report Type: 
  Country: None (occurrence: None)
  Receive Date: 20081215
  Receipt Date: 20081204
  Transmission Date: 20090506
  Serious: Yes (Disabling, Other)
  Sender: FDA-Public Use
  Company Number: FR-PFIZER INC-2008086565

PATIENT

DRUGS (2)
  1. GENOTONORM [Suspect]
     Indication: GROWTH RETARDATION
     Dosage: 0.8 MG, 1X/DAY
     Route: 058
     Dates: start: 20060412
  2. DEPAKENE [Concomitant]
     Indication: EPILEPSY

REACTIONS (1)
  - MYOPATHY [None]
